FAERS Safety Report 23619504 (Version 3)
Quarter: 2024Q4

REPORT INFORMATION
  Report Type: Spontaneous
  Country: SK (occurrence: SK)
  Receive Date: 20240312
  Receipt Date: 20241108
  Transmission Date: 20250114
  Serious: Yes (Death, Life-Threatening, Hospitalization, Other)
  Sender: BOEHRINGER INGELHEIM
  Company Number: SK-BoehringerIngelheim-2024-BI-008510

PATIENT
  Age: 73 Year
  Sex: Male

DRUGS (11)
  1. OFEV [Suspect]
     Active Substance: NINTEDANIB
     Indication: Idiopathic pulmonary fibrosis
     Dates: start: 202207, end: 202301
  2. OFEV [Suspect]
     Active Substance: NINTEDANIB
     Dates: start: 20220210, end: 202203
  3. OFEV [Suspect]
     Active Substance: NINTEDANIB
     Dates: start: 2023
  4. ASPIRIN [Concomitant]
     Active Substance: ASPIRIN
     Indication: Product used for unknown indication
  5. LOSARTAN [Concomitant]
     Active Substance: LOSARTAN
     Indication: Product used for unknown indication
  6. BISOPROLOL [Concomitant]
     Active Substance: BISOPROLOL\BISOPROLOL FUMARATE
     Indication: Product used for unknown indication
  7. MAGNESIUM [Concomitant]
     Active Substance: MAGNESIUM
     Indication: Product used for unknown indication
  8. TELMISARTAN [Concomitant]
     Active Substance: TELMISARTAN
     Indication: Product used for unknown indication
  9. rosuvstatim + ezetimib [Concomitant]
     Indication: Product used for unknown indication
  10. MOLSIDOMINE [Concomitant]
     Active Substance: MOLSIDOMINE
     Indication: Product used for unknown indication
  11. TRIMETAZIDINE [Concomitant]
     Active Substance: TRIMETAZIDINE
     Indication: Product used for unknown indication

REACTIONS (11)
  - Pneumonia [Fatal]
  - Cardiac disorder [Unknown]
  - Haemorrhoidal haemorrhage [Recovered/Resolved]
  - Idiopathic pulmonary fibrosis [Recovering/Resolving]
  - Heart valve operation [Recovered/Resolved]
  - Idiopathic pulmonary fibrosis [Not Recovered/Not Resolved]
  - Liver function test increased [Recovered/Resolved]
  - Nausea [Unknown]
  - Diarrhoea [Unknown]
  - Gastrointestinal disorder [Recovered/Resolved]
  - Gastrointestinal disorder [Unknown]

NARRATIVE: CASE EVENT DATE: 20220301
